FAERS Safety Report 9243058 (Version 3)
Quarter: 2013Q2

REPORT INFORMATION
  Report Type: Report from Study
  Country: US (occurrence: US)
  Receive Date: 20130419
  Receipt Date: 20130626
  Transmission Date: 20140414
  Serious: Yes (Other)
  Sender: FDA-Public Use
  Company Number: US-MYLANLABS-2013S1008119

PATIENT
  Age: 26 Year
  Sex: Female

DRUGS (3)
  1. AMNESTEEM CAPSULES [Suspect]
     Route: 048
     Dates: end: 20130321
  2. CLARAVIS [Suspect]
     Dates: start: 20121022
  3. NUVARING [Concomitant]
     Indication: CONTRACEPTION

REACTIONS (1)
  - Exposure during pregnancy [Not Recovered/Not Resolved]
